FAERS Safety Report 9827095 (Version 1)
Quarter: 2014Q1

REPORT INFORMATION
  Report Type: Spontaneous
  Country: US (occurrence: US)
  Receive Date: 20140117
  Receipt Date: 20140117
  Transmission Date: 20141002
  Serious: Yes (Hospitalization)
  Sender: FDA-Public Use
  Company Number: US-PERRIGO-14US000243

PATIENT
  Age: 42 Year
  Sex: Male
  Weight: 90 kg

DRUGS (7)
  1. TESTOSTERONE CYPIONATE USP RX 200 MG/ML 9Z8 [Suspect]
     Indication: MUSCLE BUILDING THERAPY
     Dosage: UNK, UNK
     Route: 030
     Dates: end: 2012
  2. TESTOSTERONE ENANTHATE RX 200 MG/ML 3P5 [Suspect]
     Indication: MUSCLE BUILDING THERAPY
     Dosage: UNK, UNK
     Route: 030
  3. TESTOSTERONE ACETATE [Suspect]
     Indication: MUSCLE BUILDING THERAPY
     Dosage: UNK, UNK
     Route: 030
     Dates: end: 2012
  4. TESTOSTERONE DECANOATE [Suspect]
     Indication: MUSCLE BUILDING THERAPY
     Dosage: UNK, UNK
     Route: 030
     Dates: end: 2012
  5. TESTOSTERONE PROPIONATE [Suspect]
     Indication: MUSCLE BUILDING THERAPY
     Dosage: UNK, UNK
     Route: 030
     Dates: end: 2012
  6. TESTOSTERONE PHENYLPROPIONATE [Suspect]
     Indication: MUSCLE BUILDING THERAPY
     Dosage: UNK, UNK
     Route: 030
     Dates: end: 2012
  7. TESTOSTERONE ISOCAPROATE [Suspect]
     Indication: MUSCLE BUILDING THERAPY
     Dosage: UNK, UNK
     Route: 030
     Dates: end: 2012

REACTIONS (8)
  - Acute respiratory distress syndrome [Recovered/Resolved]
  - Renal failure acute [Recovered/Resolved]
  - Supraventricular tachycardia [Recovered/Resolved]
  - Atrial flutter [Recovered/Resolved]
  - Diarrhoea [Unknown]
  - Vomiting [Recovered/Resolved]
  - Nausea [Recovered/Resolved]
  - Blood pressure decreased [Recovered/Resolved]
